FAERS Safety Report 7067651-X (Version None)
Quarter: 2010Q4

REPORT INFORMATION
  Report Type: 
  Country: None (occurrence: None)
  Receive Date: 20101028
  Receipt Date: 20101019
  Transmission Date: 20110411
  Serious: Yes (Hospitalization)
  Sender: FDA-Public Use
  Company Number: US-ALEXION-A201001303

PATIENT
  Sex: Male

DRUGS (2)
  1. SOLIRIS [Suspect]
     Dosage: UNK
     Route: 042
  2. VIDAZA [Suspect]
     Dosage: UNK

REACTIONS (2)
  - FATIGUE [None]
  - PNEUMONIA [None]
